FAERS Safety Report 24292744 (Version 1)
Quarter: 2024Q3

REPORT INFORMATION
  Report Type: Spontaneous
  Country: US (occurrence: US)
  Receive Date: 20240906
  Receipt Date: 20240906
  Transmission Date: 20241017
  Serious: No
  Sender: DOMPE FARMACEUTICI
  Company Number: US-FARMAPROD-202308-202310-3022

PATIENT
  Sex: Female

DRUGS (9)
  1. OXERVATE [Suspect]
     Active Substance: CENEGERMIN-BKBJ
     Indication: Neurotrophic keratopathy
     Route: 047
     Dates: start: 20230814, end: 20231012
  2. OXERVATE [Suspect]
     Active Substance: CENEGERMIN-BKBJ
     Indication: Neurotrophic keratopathy
     Route: 047
     Dates: start: 20240418
  3. OXERVATE [Suspect]
     Active Substance: CENEGERMIN-BKBJ
  4. CRANBERRY [Concomitant]
     Active Substance: CRANBERRY
  5. AVASTIN [Concomitant]
     Active Substance: BEVACIZUMAB
  6. PREDNISOLONE-NEPAFENAC [Concomitant]
  7. MOXIFLOXACIN [Concomitant]
     Active Substance: MOXIFLOXACIN
  8. ZIOPTAN [Concomitant]
     Active Substance: TAFLUPROST
  9. UNSPECIFIED INGREDIENT [Concomitant]
     Active Substance: UNSPECIFIED INGREDIENT

REACTIONS (4)
  - Eye pain [Not Recovered/Not Resolved]
  - Periorbital swelling [Unknown]
  - Intentional product misuse [Unknown]
  - Asthenopia [Unknown]
